FAERS Safety Report 20770575 (Version 2)
Quarter: 2022Q2

REPORT INFORMATION
  Report Type: Spontaneous
  Country: DE (occurrence: DE)
  Receive Date: 20220429
  Receipt Date: 20220513
  Transmission Date: 20220721
  Serious: Yes (Other)
  Sender: FDA-Public Use
  Company Number: DE-009507513-2204DEU009936

PATIENT
  Age: 80 Year
  Sex: Male

DRUGS (2)
  1. DORZOLAMIDE HYDROCHLORIDE [Suspect]
     Active Substance: DORZOLAMIDE HYDROCHLORIDE
     Indication: Glaucoma
     Dosage: EYE DROPS TWICE A DAY (IN THE MORNING AND IN THE EVENING, ALTERNATING TTRUSOPT AND LANTANO-VISION. D
     Route: 047
     Dates: start: 2019, end: 202202
  2. LATANOPROST [Suspect]
     Active Substance: LATANOPROST
     Indication: Glaucoma
     Dosage: EYE DROPS TWICE A DAY (IN THE MORNING AND IN THE EVENING, ALTERNATING TTRUSOPT AND LANTANO-VISION. D
     Route: 065
     Dates: start: 2019, end: 202202

REACTIONS (11)
  - Prostate cancer [Unknown]
  - Chills [Recovering/Resolving]
  - Peripheral swelling [Recovering/Resolving]
  - Spider vein [Recovering/Resolving]
  - Constipation [Recovering/Resolving]
  - Dyspepsia [Recovering/Resolving]
  - Gastrooesophageal reflux disease [Recovering/Resolving]
  - Insomnia [Recovering/Resolving]
  - Peripheral swelling [Recovering/Resolving]
  - Off label use [Unknown]
  - Prescribed underdose [Unknown]
